FAERS Safety Report 8170259-6 (Version None)
Quarter: 2012Q1

REPORT INFORMATION
  Report Type: 
  Country: None (occurrence: None)
  Receive Date: 20120228
  Receipt Date: 20120217
  Transmission Date: 20120608
  Serious: Yes (Hospitalization)
  Sender: FDA-Public Use
  Company Number: US-BAYER-2011-037597

PATIENT
  Age: 23 Year
  Sex: Female
  Weight: 65.76 kg

DRUGS (3)
  1. FLAGYL [Concomitant]
  2. YAZ [Suspect]
     Dosage: UNK
     Dates: start: 20080101, end: 20090101
  3. NEXIUM [Concomitant]
     Indication: ABDOMINAL PAIN UPPER

REACTIONS (10)
  - GALLBLADDER CHOLESTEROLOSIS [None]
  - GENERAL PHYSICAL HEALTH DETERIORATION [None]
  - ANXIETY [None]
  - ORGAN FAILURE [None]
  - CHOLELITHIASIS [None]
  - INTERNAL INJURY [None]
  - PAIN [None]
  - ANHEDONIA [None]
  - EMOTIONAL DISTRESS [None]
  - CHOLECYSTITIS CHRONIC [None]
